FAERS Safety Report 5214948-1 (Version None)
Quarter: 2007Q1

REPORT INFORMATION
  Report Type: 
  Country: None (occurrence: None)
  Receive Date: 20070122
  Receipt Date: 20070112
  Transmission Date: 20070707
  Serious: Yes (Other)
  Sender: FDA-Public Use
  Company Number: DE-PFIZER INC-2007004093

PATIENT
  Sex: Female

DRUGS (3)
  1. ATORVASTATIN CALCIUM [Suspect]
     Indication: HYPERCHOLESTEROLAEMIA
     Dosage: DAILY DOSE:20MG
     Route: 048
     Dates: start: 20040101, end: 20070107
  2. ALCOHOL [Interacting]
     Route: 048
  3. LEVOTHYROXINE SODIUM [Concomitant]
     Route: 048

REACTIONS (5)
  - ALCOHOL INTERACTION [None]
  - CONFUSIONAL STATE [None]
  - COORDINATION ABNORMAL [None]
  - FATIGUE [None]
  - RETROGRADE AMNESIA [None]
